FAERS Safety Report 20059116 (Version 1)
Quarter: 2021Q4

REPORT INFORMATION
  Report Type: Spontaneous
  Country: JP (occurrence: JP)
  Receive Date: 20211111
  Receipt Date: 20211111
  Transmission Date: 20220303
  Serious: Yes (Death, Other)
  Sender: FDA-Public Use
  Company Number: JP-CHUGAI-2021006158

PATIENT
  Age: 70 Year
  Sex: Male
  Weight: 56.3 kg

DRUGS (2)
  1. TECENTRIQ [Suspect]
     Active Substance: ATEZOLIZUMAB
     Indication: Hepatocellular carcinoma
     Dosage: 1200 MILLIGRAM, ONCE/3WEEKS
     Route: 041
     Dates: start: 20210106, end: 20210421
  2. AVASTIN [Suspect]
     Active Substance: BEVACIZUMAB
     Indication: Hepatocellular carcinoma
     Dosage: 796.5 MILLIGRAM
     Route: 042
     Dates: start: 20210106, end: 20210331

REACTIONS (6)
  - Acquired haemophilia [Fatal]
  - Ileus paralytic [Unknown]
  - Suture rupture [Unknown]
  - Peritonitis [Unknown]
  - Candida infection [Unknown]
  - Cholangitis [Unknown]

NARRATIVE: CASE EVENT DATE: 20210517
